FAERS Safety Report 11520290 (Version 4)
Quarter: 2015Q4

REPORT INFORMATION
  Report Type: Report from Study
  Country: GB (occurrence: GB)
  Receive Date: 20150918
  Receipt Date: 20151127
  Transmission Date: 20160304
  Serious: Yes (Other)
  Sender: FDA-Public Use
  Company Number: GB-AMGEN-GBRNI2015095329

PATIENT
  Age: 86 Year
  Sex: Male
  Weight: 106 kg

DRUGS (10)
  1. ACETYLSALICYLIC ACID [Concomitant]
     Active Substance: ASPIRIN
     Dosage: 75 MG, QD
     Dates: start: 201501
  2. CANDESARTAN [Concomitant]
     Active Substance: CANDESARTAN
     Dosage: 8 MG, QD
     Dates: start: 201501
  3. FUROSEMIDE. [Concomitant]
     Active Substance: FUROSEMIDE
     Dosage: 40 MG, QD
  4. SIMVASTATIN. [Concomitant]
     Active Substance: SIMVASTATIN
     Dosage: 40 MG, QD
     Dates: start: 201501
  5. IVABRADINE [Suspect]
     Active Substance: IVABRADINE
     Indication: CARDIAC FAILURE
     Dosage: 2.5 MG, BID
     Route: 048
     Dates: start: 20150216, end: 20150330
  6. IVABRADINE [Suspect]
     Active Substance: IVABRADINE
     Dosage: 5 MG, BID
     Route: 048
     Dates: start: 20150401
  7. TAMSULIN [Concomitant]
     Dosage: 400 MUG, QD
     Dates: start: 201501
  8. CARVEDILOL. [Concomitant]
     Active Substance: CARVEDILOL
     Dosage: 6.25 MG, TWICE DAILY
     Dates: start: 201501
  9. IVABRADINE [Suspect]
     Active Substance: IVABRADINE
     Dosage: 7.5 MG, QD (DAILY)
     Route: 048
     Dates: start: 20150501
  10. FUROSEMIDE. [Concomitant]
     Active Substance: FUROSEMIDE
     Dosage: 80 MG, QD
     Dates: start: 201501

REACTIONS (4)
  - Ventricular extrasystoles [Unknown]
  - Presyncope [Recovered/Resolved]
  - Sinus bradycardia [Not Recovered/Not Resolved]
  - Bundle branch block [Not Recovered/Not Resolved]

NARRATIVE: CASE EVENT DATE: 20150522
